FAERS Safety Report 20922187 (Version 5)
Quarter: 2022Q4

REPORT INFORMATION
  Report Type: Spontaneous
  Country: CN (occurrence: CN)
  Receive Date: 20220607
  Receipt Date: 20221205
  Transmission Date: 20230112
  Serious: Yes (Other)
  Sender: FDA-Public Use
  Company Number: CN-BEH-2022146102

PATIENT
  Age: 38 Year
  Sex: Female

DRUGS (6)
  1. ALBUMIN HUMAN [Suspect]
     Active Substance: ALBUMIN HUMAN
     Indication: Hypoproteinaemia
     Dosage: UNK
     Route: 042
  2. ALBUMIN HUMAN [Suspect]
     Active Substance: ALBUMIN HUMAN
     Dosage: UNK
     Route: 042
  3. FUROSEMIDE [Suspect]
     Active Substance: FUROSEMIDE
     Indication: Polyuria
     Route: 065
  4. MAGNESIUM SULFATE [Suspect]
     Active Substance: MAGNESIUM SULFATE
     Indication: Muscle spasms
     Route: 065
  5. ETHACRIDINE LACTATE [Suspect]
     Active Substance: ETHACRIDINE LACTATE
     Indication: Labour induction
     Dosage: UNK
     Route: 065
     Dates: start: 20200325
  6. FIBRINOGEN [Suspect]
     Active Substance: FIBRINOGEN HUMAN
     Indication: Product used for unknown indication
     Route: 065

REACTIONS (16)
  - Haemodilution [Unknown]
  - Maternal exposure during pregnancy [Unknown]
  - Coagulopathy [Unknown]
  - Maternal exposure during pregnancy [Unknown]
  - Complication of delivery [Unknown]
  - Maternal exposure during pregnancy [Unknown]
  - Generalised oedema [Recovered/Resolved]
  - Maternal exposure during pregnancy [Recovered/Resolved]
  - Placenta accreta [Unknown]
  - Maternal exposure during pregnancy [Unknown]
  - Placental disorder [Unknown]
  - Maternal exposure during pregnancy [Unknown]
  - Procedural haemorrhage [Unknown]
  - Maternal exposure during pregnancy [Unknown]
  - Stillbirth [Not Recovered/Not Resolved]
  - Maternal exposure during pregnancy [Not Recovered/Not Resolved]
